FAERS Safety Report 20762349 (Version 1)
Quarter: 2022Q2

REPORT INFORMATION
  Report Type: Spontaneous
  Country: AU (occurrence: AU)
  Receive Date: 20220428
  Receipt Date: 20220428
  Transmission Date: 20220721
  Serious: Yes (Disabling, Other)
  Sender: FDA-Public Use
  Company Number: AU-GLAXOSMITHKLINE-AU2022APC068263

PATIENT
  Age: 59 Year
  Sex: Female

DRUGS (12)
  1. VENTOLIN [Suspect]
     Active Substance: ALBUTEROL SULFATE
     Indication: Product used for unknown indication
     Dosage: UNK
  2. NORSPAN [Suspect]
     Active Substance: BUPRENORPHINE
     Indication: Pain
     Dosage: 40 MG
     Route: 062
  3. NORSPAN [Suspect]
     Active Substance: BUPRENORPHINE
     Dosage: 10 MG, QD,  EXPIRED PRODUCT ADMINISTERED
     Dates: start: 20211005, end: 20211005
  4. NORSPAN [Suspect]
     Active Substance: BUPRENORPHINE
     Dosage: 20 MG
     Route: 062
     Dates: start: 202012, end: 20211112
  5. NORSPAN [Suspect]
     Active Substance: BUPRENORPHINE
     Dosage: 25 MG, WE
     Route: 062
     Dates: start: 20210912
  6. NORSPAN [Suspect]
     Active Substance: BUPRENORPHINE
     Dosage: UNK, WE, 20MG + 10 MG STRENGTH
     Route: 062
     Dates: start: 20211005, end: 20211005
  7. TRAMADOL [Concomitant]
     Active Substance: TRAMADOL
     Indication: Product used for unknown indication
     Dosage: UNK
  8. PALEXIA [Concomitant]
     Active Substance: TAPENTADOL HYDROCHLORIDE
     Indication: Product used for unknown indication
     Dosage: UNK
  9. ASTRAZENECA VACCINE (AZD1222) [Concomitant]
     Indication: COVID-19 prophylaxis
     Dosage: UNK
  10. PROLIA [Concomitant]
     Active Substance: DENOSUMAB
     Indication: Osteoporosis
     Dosage: UNK
  11. RABEPRAZOLE SODIUM [Concomitant]
     Active Substance: RABEPRAZOLE SODIUM
     Indication: Gastrooesophageal reflux disease
     Dosage: UNK
  12. VALIUM [Concomitant]
     Active Substance: DIAZEPAM
     Indication: Product used for unknown indication
     Dosage: UNK

REACTIONS (15)
  - Narcolepsy [Unknown]
  - Breakthrough pain [Not Recovered/Not Resolved]
  - Dermatitis contact [Unknown]
  - Rash pruritic [Recovered/Resolved]
  - Drug hypersensitivity [Unknown]
  - Application site erythema [Unknown]
  - Application site pain [Unknown]
  - Application site exfoliation [Unknown]
  - Application site rash [Recovered/Resolved]
  - Rash erythematous [Unknown]
  - Headache [Unknown]
  - Rash [Unknown]
  - Expired product administered [Unknown]
  - Product adhesion issue [Unknown]
  - Incorrect product dosage form administered [Unknown]

NARRATIVE: CASE EVENT DATE: 20210101
